FAERS Safety Report 20446152 (Version 1)
Quarter: 2022Q1

REPORT INFORMATION
  Report Type: Spontaneous
  Country: US (occurrence: US)
  Receive Date: 20220208
  Receipt Date: 20220208
  Transmission Date: 20220423
  Serious: Yes (Death)
  Sender: FDA-Public Use
  Company Number: US-PERRIGO-22US001745

PATIENT
  Age: 54 Year
  Sex: Female

DRUGS (7)
  1. PROMETHAZINE HYDROCHLORIDE [Suspect]
     Active Substance: PROMETHAZINE HYDROCHLORIDE
     Indication: Drug abuse
     Dosage: UNKNOWN, UNKNOWN
     Route: 065
  2. HEROIN [Suspect]
     Active Substance: DIAMORPHINE
     Indication: Drug abuse
     Dosage: UNKNOWN, UNKNOWN
     Route: 065
  3. COCAINE [Suspect]
     Active Substance: COCAINE
     Indication: Drug abuse
     Dosage: UNKNOWN, UNKNOWN
     Route: 065
  4. DIAZEPAM [Suspect]
     Active Substance: DIAZEPAM
     Indication: Drug abuse
     Dosage: UNKNOWN, UNKNOWN
     Route: 065
  5. MIRTAZAPINE [Suspect]
     Active Substance: MIRTAZAPINE
     Indication: Drug abuse
     Dosage: UNKNOWN, UNKNOWN
     Route: 065
  6. HYDROXYZINE [Suspect]
     Active Substance: HYDROXYZINE HYDROCHLORIDE
     Indication: Drug abuse
     Dosage: UNKNOWN, UNKNOWN
     Route: 065
  7. ALCOHOL [Suspect]
     Active Substance: ALCOHOL
     Indication: Drug abuse
     Dosage: UNKNOWN, UNKNOWN
     Route: 065

REACTIONS (1)
  - Exposure to toxic agent [Fatal]

NARRATIVE: CASE EVENT DATE: 20200101
